FAERS Safety Report 4820981-1 (Version None)
Quarter: 2005Q4

REPORT INFORMATION
  Report Type: 
  Country: None (occurrence: None)
  Receive Date: 20051104
  Receipt Date: 20051028
  Transmission Date: 20060501
  Serious: Yes (Other)
  Sender: FDA-Public Use
  Company Number: JP-ROCHE-423133

PATIENT
  Age: 1 Year

DRUGS (1)
  1. ROCEPHIN [Suspect]
     Route: 041

REACTIONS (1)
  - SHOCK [None]
